FAERS Safety Report 5844589-4 (Version None)
Quarter: 2008Q3

REPORT INFORMATION
  Report Type: 
  Country: None (occurrence: None)
  Receive Date: 20080813
  Receipt Date: 20080813
  Transmission Date: 20090109
  Serious: Yes (Death)
  Sender: FDA-Public Use
  Company Number: None

PATIENT
  Age: 71 Year
  Sex: Male
  Weight: 93 kg

DRUGS (2)
  1. SODIUM POLYSTYRENE SULFONATE [Suspect]
     Indication: HYPERKALAEMIA
     Dosage: 30 GRAMS X 1 PO;  7.5 GRAMS X 2 OTHER
     Route: 048
     Dates: start: 20080709, end: 20080709
  2. SODIUM POLYSTYRENE SULFONATE [Suspect]

REACTIONS (2)
  - POOR QUALITY DRUG ADMINISTERED [None]
  - SEPSIS [None]
